FAERS Safety Report 6952763-9 (Version None)
Quarter: 2010Q3

REPORT INFORMATION
  Report Type: 
  Country: None (occurrence: None)
  Receive Date: 20100829
  Receipt Date: 20100512
  Transmission Date: 20110219
  Serious: No
  Sender: FDA-Public Use
  Company Number: US-ABBOTT-10P-163-0645469-00

PATIENT
  Age: 52 Year
  Sex: Female
  Weight: 59.928 kg

DRUGS (1)
  1. NIASPAN [Suspect]
     Indication: BLOOD CHOLESTEROL INCREASED
     Dates: start: 20100503

REACTIONS (2)
  - COUGH [None]
  - DYSPHONIA [None]
